FAERS Safety Report 23614825 (Version 2)
Quarter: 2024Q1

REPORT INFORMATION
  Report Type: Report from Study
  Country: CN (occurrence: CN)
  Receive Date: 20240311
  Receipt Date: 20240319
  Transmission Date: 20240410
  Serious: Yes (Hospitalization)
  Sender: FDA-Public Use
  Company Number: CN-ABBVIE-5668614

PATIENT
  Age: 27 Year
  Sex: Male
  Weight: 82 kg

DRUGS (8)
  1. RINVOQ [Suspect]
     Active Substance: UPADACITINIB
     Indication: Dermatitis atopic
     Dosage: 15 MILLIGRAM?FORM STRENGTH: 15 MILLIGRAM
     Route: 048
     Dates: start: 20230310, end: 20240301
  2. RINVOQ [Suspect]
     Active Substance: UPADACITINIB
     Indication: Dermatitis atopic
     Dosage: 30 MILLIGRAM?FORM STRENGTH: 15 MILLIGRAM
     Route: 048
     Dates: start: 20240302
  3. DESONIDE [Concomitant]
     Active Substance: DESONIDE
     Indication: Dermatitis atopic
     Dosage: 2 TIMES
     Route: 061
     Dates: start: 20230609
  4. EBASTINE [Concomitant]
     Active Substance: EBASTINE
     Indication: Dermatitis atopic
     Dosage: 20 MILLIGRAM
     Route: 048
     Dates: start: 20230825, end: 20230918
  5. Compound glycyrrhizin [Concomitant]
     Indication: Dermatitis atopic
     Dosage: 100 MILLIGRAM?LAST ADMIN DATE 07 2023
     Route: 048
     Dates: start: 20230706
  6. TACROLIMUS [Concomitant]
     Active Substance: TACROLIMUS
     Indication: Dermatitis atopic
     Dosage: 2 TIMES 0.1
     Route: 061
     Dates: start: 20221209
  7. .ALPHA.-TOCOPHEROL\ALLANTOIN [Concomitant]
     Active Substance: .ALPHA.-TOCOPHEROL\ALLANTOIN
     Indication: Dermatitis atopic
     Dosage: 2 TIMES?EMOLLIENTS-
     Route: 061
     Dates: start: 20230210
  8. LEVOCETIRIZINE HYDROCHLORIDE [Concomitant]
     Active Substance: LEVOCETIRIZINE HYDROCHLORIDE
     Indication: Dermatitis atopic
     Dosage: 5 MILLIGRAM
     Route: 048
     Dates: start: 20231020

REACTIONS (4)
  - Upper limb fracture [Recovered/Resolved]
  - Helicobacter infection [Not Recovered/Not Resolved]
  - Avulsion fracture [Recovered/Resolved]
  - Functional gastrointestinal disorder [Not Recovered/Not Resolved]

NARRATIVE: CASE EVENT DATE: 20231127
